FAERS Safety Report 5975651-3 (Version None)
Quarter: 2008Q4

REPORT INFORMATION
  Report Type: 
  Country: None (occurrence: None)
  Receive Date: 20081128
  Receipt Date: 20081113
  Transmission Date: 20090506
  Serious: Yes (Other)
  Sender: FDA-Public Use
  Company Number: CHPA2008US20468

PATIENT
  Age: 3 Year
  Sex: Female

DRUGS (1)
  1. TRIAMINIC COUGH + SORE THROAT WITHOUT PSE (NCH) (DEXTROMETHORPPHAN HYD [Suspect]
     Dosage: 3 TSP,ONCE/ SINGLE, ORAL
     Route: 048
     Dates: start: 20081113, end: 20081113

REACTIONS (3)
  - INCORRECT DOSE ADMINISTERED [None]
  - MYDRIASIS [None]
  - PSYCHOMOTOR HYPERACTIVITY [None]
